FAERS Safety Report 7274913-X (Version None)
Quarter: 2011Q1

REPORT INFORMATION
  Report Type: 
  Country: None (occurrence: None)
  Receive Date: 20110204
  Receipt Date: 20110128
  Transmission Date: 20110831
  Serious: Yes (Hospitalization, Other)
  Sender: FDA-Public Use
  Company Number: IT-SANOFI-AVENTIS-2011SA005642

PATIENT
  Age: 65 Year
  Sex: Male

DRUGS (3)
  1. CORDARONE [Suspect]
     Indication: ATRIAL FIBRILLATION
     Route: 048
  2. SIMVASTATIN [Suspect]
     Route: 048
  3. MULTAQ [Suspect]
     Indication: ATRIAL FIBRILLATION
     Route: 048

REACTIONS (6)
  - LIVER INJURY [None]
  - JAUNDICE [None]
  - TRANSAMINASES INCREASED [None]
  - GASTROINTESTINAL DISORDER [None]
  - ASTHENIA [None]
  - NAUSEA [None]
